FAERS Safety Report 10039180 (Version 1)
Quarter: 2014Q1

REPORT INFORMATION
  Report Type: Spontaneous
  Country: US (occurrence: None)
  Receive Date: 20140306
  Receipt Date: 20140306
  Transmission Date: 20141002
  Serious: Yes (Hospitalization, Other)
  Sender: FDA-Public Use
  Company Number: 163-21880-13062158

PATIENT
  Age: 67 Year
  Sex: Male
  Weight: 72.12 kg

DRUGS (12)
  1. REVLIMID [Suspect]
     Indication: PLASMA CELL MYELOMA
     Dosage: 10 MG, 21 IN 21 D, PO
     Route: 048
     Dates: start: 20130530, end: 20130608
  2. REVLIMID [Suspect]
     Indication: PLASMA CELL LEUKAEMIA
     Dosage: 10 MG, 21 IN 21 D, PO
     Route: 048
     Dates: start: 20130530, end: 20130608
  3. BABY ASPIRIN (ACETYLSALICYLIC ACID) (UNKNOWN) [Concomitant]
  4. ADVAIR (SERETIDE MITE) (INHALANT) [Concomitant]
  5. PREDNISONE (PREDNISONE) (UNKNOWN) [Concomitant]
  6. MVI (MVI) (UNKNOWN) [Concomitant]
  7. VITAMIN D (ERGOCALCIFEROL) (UNKNOWN) [Concomitant]
  8. LEXAPRO (ESCITALOPRAM OXALATE) (UNKNOWN) [Concomitant]
  9. NEXIUM (ESOMEPRAZOLE) (UNKNOWN) [Concomitant]
  10. ALLEGRA (FEXOFENADINE HYDROCHLORIDE) (UNKNOWN) [Concomitant]
  11. ASACOL (MESALAZINE) (UNKNOWN) [Concomitant]
  12. COMBIVENT (COMBIVENT) (INHALANT) [Concomitant]

REACTIONS (3)
  - Deep vein thrombosis [None]
  - Pulmonary embolism [None]
  - Pneumonitis [None]
